FAERS Safety Report 11184948 (Version 1)
Quarter: 2015Q2

REPORT INFORMATION
  Report Type: Spontaneous
  Country: US (occurrence: None)
  Receive Date: 20150611
  Receipt Date: 20150611
  Transmission Date: 20150821
  Serious: No
  Sender: FDA-Public Use
  Company Number: None

PATIENT
  Age: 62 Year
  Sex: Female
  Weight: 60.78 kg

DRUGS (7)
  1. VIIBRYD [Suspect]
     Active Substance: VILAZODONE HYDROCHLORIDE
     Indication: DEPRESSION
     Dosage: ONE PILL
     Route: 048
     Dates: start: 20150424, end: 20150609
  2. VITAMIN D [Concomitant]
     Active Substance: CHOLECALCIFEROL
  3. EVISTA [Concomitant]
     Active Substance: RALOXIFENE HYDROCHLORIDE
  4. VIIBRYD [Suspect]
     Active Substance: VILAZODONE HYDROCHLORIDE
     Indication: ANXIETY
     Dosage: ONE PILL
     Route: 048
     Dates: start: 20150424, end: 20150609
  5. CALCIUM [Concomitant]
     Active Substance: CALCIUM
  6. OMEGA-3 ACIDS [Concomitant]
     Active Substance: OMEGA-3 FATTY ACIDS
  7. GLUCOSAMINE [Concomitant]
     Active Substance: GLUCOSAMINE

REACTIONS (3)
  - Depressed mood [None]
  - Nervousness [None]
  - Alopecia [None]

NARRATIVE: CASE EVENT DATE: 20150609
